FAERS Safety Report 9178458 (Version 2)
Quarter: 2013Q4

REPORT INFORMATION
  Report Type: Spontaneous
  Country: US (occurrence: US)
  Receive Date: 20130321
  Receipt Date: 20131223
  Transmission Date: 20140711
  Serious: Yes (Hospitalization, Other)
  Sender: FDA-Public Use
  Company Number: US-BAYER-2013-034258

PATIENT
  Age: 28 Year
  Sex: Female

DRUGS (8)
  1. YASMIN [Suspect]
  2. YAZ [Suspect]
  3. OCELLA [Suspect]
  4. PROPOXYPHENE HCL AND ACETAMINOPHEN [Concomitant]
     Dosage: 100-650MG
  5. HYDROCODONE W/APAP [Concomitant]
     Dosage: 5-325 MG
  6. DIFFERIN [Concomitant]
     Dosage: 0.1 %, HS
     Dates: start: 20090703
  7. MINOCIN [Concomitant]
     Dosage: 100 MG, QD
     Dates: start: 20090703
  8. GAS-X [Concomitant]
     Dosage: UNK
     Dates: start: 20090703

REACTIONS (4)
  - Cholecystitis chronic [None]
  - Cholecystectomy [None]
  - Injury [None]
  - Emotional distress [None]
